FAERS Safety Report 22207295 (Version 1)
Quarter: 2023Q2

REPORT INFORMATION
  Report Type: Spontaneous
  Country: US (occurrence: None)
  Receive Date: 20230412
  Receipt Date: 20230412
  Transmission Date: 20230722
  Serious: Yes (Hospitalization)
  Sender: FDA-Public Use
  Company Number: None

PATIENT
  Age: 54 Year
  Sex: Female

DRUGS (6)
  1. XOLAIR [Suspect]
     Active Substance: OMALIZUMAB
     Indication: Asthma
     Dosage: OTHER FREQUENCY : EVERY 28 DAYS;?
     Route: 058
     Dates: start: 20220826
  2. AMLODIPINE [Concomitant]
     Active Substance: AMLODIPINE BESYLATE
  3. BENZONATATE CAP 200MG [Concomitant]
  4. LIDOCAINE PAD 5% [Concomitant]
  5. PREDNISONE [Concomitant]
     Active Substance: PREDNISONE
  6. SPIRIVA CAP HANDIHLR [Concomitant]

REACTIONS (2)
  - Asthma [None]
  - Product use issue [None]

NARRATIVE: CASE EVENT DATE: 20230320
